FAERS Safety Report 9538004 (Version 1)
Quarter: 2013Q3

REPORT INFORMATION
  Report Type: Spontaneous
  Country: US (occurrence: US)
  Receive Date: 20130919
  Receipt Date: 20130919
  Transmission Date: 20140515
  Serious: No
  Sender: FDA-Public Use
  Company Number: US-B.I. PHARMACEUTICALS,INC./RIDGEFIELD-2013-BI-28855BP

PATIENT
  Sex: Female
  Weight: 127 kg

DRUGS (7)
  1. PRADAXA [Suspect]
     Indication: ATRIAL FIBRILLATION
     Dosage: 300 MG
     Route: 048
     Dates: start: 2012
  2. BENICAR [Concomitant]
     Indication: HYPERTENSION
     Dosage: STRENGTH: 40-25MG; DAILY DOSE: 40-25MG
     Route: 048
  3. BYSTOLIC [Concomitant]
     Indication: HYPERTENSION
     Route: 048
  4. FLECANIDE [Concomitant]
     Indication: HEART RATE IRREGULAR
     Dosage: 100 MG
     Route: 048
  5. POTASSIUM CHL [Concomitant]
     Dosage: 10 MEQ
     Route: 048
  6. CO Q 10 [Concomitant]
     Dosage: 100 MG
     Route: 048
  7. FUROSEMIDE [Concomitant]
     Indication: FLUID RETENTION
     Dosage: 20 MG
     Route: 048

REACTIONS (5)
  - Osteoarthritis [Not Recovered/Not Resolved]
  - Dyspepsia [Not Recovered/Not Resolved]
  - Burn oesophageal [Recovered/Resolved]
  - Dyspnoea [Not Recovered/Not Resolved]
  - Arthralgia [Not Recovered/Not Resolved]
